FAERS Safety Report 4845396-1 (Version None)
Quarter: 2005Q4

REPORT INFORMATION
  Report Type: 
  Country: None (occurrence: None)
  Receive Date: 20051129
  Receipt Date: 20051114
  Transmission Date: 20060501
  Serious: Yes (Hospitalization)
  Sender: FDA-Public Use
  Company Number: 2005-133947-NL

PATIENT
  Age: 75 Year
  Sex: Female

DRUGS (6)
  1. MIRTAZAPINE [Suspect]
     Dosage: 90 MG/45 MG; ORAL
     Route: 048
     Dates: start: 20050401, end: 20051024
  2. MIRTAZAPINE [Suspect]
     Dosage: 90 MG/45 MG; ORAL
     Route: 048
     Dates: start: 20051025
  3. CALCICHEW D3 [Concomitant]
  4. DONEPEZIL HCL [Concomitant]
  5. AMLODIPINE [Concomitant]
  6. HALOPERIDOL [Concomitant]

REACTIONS (2)
  - CONVULSION [None]
  - OVERDOSE [None]
